FAERS Safety Report 4659479-2 (Version None)
Quarter: 2005Q2

REPORT INFORMATION
  Report Type: 
  Country: None (occurrence: None)
  Receive Date: 20050412
  Receipt Date: 20041220
  Transmission Date: 20051028
  Serious: No
  Sender: FDA-Public Use
  Company Number: 2004S1000283

PATIENT
  Age: 61 Year
  Sex: Male

DRUGS (47)
  1. CUBICIN [Suspect]
     Indication: BACTERIAL INFECTION
     Dosage: 300 MG; Q24H; IV
     Route: 042
     Dates: start: 20041110, end: 20041220
  2. CUBICIN [Suspect]
     Indication: CULTURE POSITIVE
     Dosage: 300 MG; Q24H; IV
     Route: 042
     Dates: start: 20041110, end: 20041220
  3. ACETAMINOPHEN [Concomitant]
  4. ACETYLCYSTEINE [Concomitant]
  5. ALBUMIN (HUMAN) [Concomitant]
  6. ALTEPLASE [Concomitant]
  7. AMPHOTERICIN B [Concomitant]
  8. CEFEPIME [Concomitant]
  9. CIPROFLOXACIN HCL [Concomitant]
  10. DIPHENHYDRAMINE HCL [Concomitant]
  11. ENOXAPARIN SODIUM [Concomitant]
  12. ESCITALOPRAM OXALATE [Concomitant]
  13. ETOMIDATE [Concomitant]
  14. FAT EMULSION [Concomitant]
  15. FENTANYL [Concomitant]
  16. FLUDROCORTISONE ACETATE [Concomitant]
  17. FRAGMIN [Concomitant]
  18. FUROSEMIDE [Concomitant]
  19. GANCICLOVIR [Concomitant]
  20. HEPARIN [Concomitant]
  21. HYDROCORTISONE SODIUM SUCCINATE [Concomitant]
  22. HYDROMORPHONE HCL [Concomitant]
  23. INSULIN [Concomitant]
  24. IMMUNE GLOBULIN (HUMAN) [Concomitant]
  25. LANSOPRAZOLE [Concomitant]
  26. LEVOFLOXACIN [Concomitant]
  27. LORAZEPAM [Concomitant]
  28. MAGNESIUM SULFATE [Concomitant]
  29. METHYLPREDNISOLONE [Concomitant]
  30. METRONIDAZOLE [Concomitant]
  31. NOREPINEPHRINE [Concomitant]
  32. NYSTATIN [Concomitant]
  33. ONDANSETRAN [Concomitant]
  34. POTASSIUM CHLORIDE [Concomitant]
  35. POTASSIUM PHOSPHATES [Concomitant]
  36. PROPOFOL [Concomitant]
  37. RISPERIDONE [Concomitant]
  38. ROXICET [Concomitant]
  39. SODIUM BICARBONATE [Concomitant]
  40. SODIUM CHLORIDE [Concomitant]
  41. SULFAMETHOXAZOLE + TRIMETHOPRIM [Concomitant]
  42. TACROLIMUS [Concomitant]
  43. TOTAL PARENTAL NUTRITION [Concomitant]
  44. UNASYN [Concomitant]
  45. URSODIOL [Concomitant]
  46. VANCOMYCIN [Concomitant]
  47. WARFARIN SODIUM [Concomitant]

REACTIONS (2)
  - INTERNATIONAL NORMALISED RATIO INCREASED [None]
  - LIVER FUNCTION TEST ABNORMAL [None]
